FAERS Safety Report 8314535-2 (Version None)
Quarter: 2012Q2

REPORT INFORMATION
  Report Type: 
  Country: None (occurrence: None)
  Receive Date: 20120426
  Receipt Date: 20120422
  Transmission Date: 20120825
  Serious: Yes (Hospitalization)
  Sender: FDA-Public Use
  Company Number: DE-ROCHE-1062489

PATIENT
  Sex: Female
  Weight: 61 kg

DRUGS (7)
  1. PREGABALIN [Suspect]
     Dosage: TAPERED OFF
  2. COPEGUS [Suspect]
     Indication: HEPATITIS C
     Route: 048
  3. PEGASYS [Suspect]
     Indication: HEPATITIS C
     Route: 058
     Dates: start: 20111125
  4. NOVOPULMON [Concomitant]
     Indication: ASTHMA
     Route: 055
  5. PREGABALIN [Suspect]
     Indication: FIBROMYALGIA
     Route: 048
  6. BOCEPREVIR [Suspect]
     Indication: HEPATITIS C
     Route: 048
     Dates: start: 20111223
  7. FORMOTEROL FUMARATE [Concomitant]
     Indication: ASTHMA
     Route: 055

REACTIONS (1)
  - PALPITATIONS [None]
